FAERS Safety Report 12755968 (Version 2)
Quarter: 2016Q3

REPORT INFORMATION
  Report Type: Report from Study
  Country: US (occurrence: US)
  Receive Date: 20160916
  Receipt Date: 20160930
  Transmission Date: 20161109
  Serious: Yes (Death, Hospitalization, Other)
  Sender: FDA-Public Use
  Company Number: US-ACTELION-A-NJ2016-133484

PATIENT
  Age: 70 Year
  Sex: Male

DRUGS (8)
  1. OPSUMIT [Suspect]
     Active Substance: MACITENTAN
     Indication: PULMONARY HYPERTENSION
     Dosage: 10 MG, QD
     Route: 048
     Dates: start: 20150609, end: 201608
  2. FLOMAX [Concomitant]
     Active Substance: TAMSULOSIN HYDROCHLORIDE
  3. TOPROL XL [Concomitant]
     Active Substance: METOPROLOL SUCCINATE
  4. ALLOPURINOL. [Concomitant]
     Active Substance: ALLOPURINOL
  5. SILDENAFIL. [Concomitant]
     Active Substance: SILDENAFIL
  6. LISINOPRIL. [Concomitant]
     Active Substance: LISINOPRIL
  7. FUROSEMIDE. [Concomitant]
     Active Substance: FUROSEMIDE
  8. METOLAZONE. [Concomitant]
     Active Substance: METOLAZONE
     Dosage: UNK
     Dates: start: 20160216

REACTIONS (12)
  - Fluid overload [Not Recovered/Not Resolved]
  - Lethargy [Fatal]
  - Transfusion [Not Recovered/Not Resolved]
  - Abdominal distension [Not Recovered/Not Resolved]
  - Hypotension [Fatal]
  - Anaemia [Not Recovered/Not Resolved]
  - Haemodialysis [Unknown]
  - Dyspnoea [Not Recovered/Not Resolved]
  - Oedema [Not Recovered/Not Resolved]
  - End stage renal disease [Fatal]
  - Right ventricular failure [Not Recovered/Not Resolved]
  - Renal failure [Unknown]

NARRATIVE: CASE EVENT DATE: 20160216
